FAERS Safety Report 22311552 (Version 1)
Quarter: 2023Q2

REPORT INFORMATION
  Report Type: Spontaneous
  Country: US (occurrence: US)
  Receive Date: 20230511
  Receipt Date: 20230511
  Transmission Date: 20230721
  Serious: Yes (Other)
  Sender: FDA-Public Use
  Company Number: US-JNJFOC-20230505011

PATIENT
  Sex: Male

DRUGS (1)
  1. CONCERTA [Suspect]
     Active Substance: METHYLPHENIDATE HYDROCHLORIDE
     Indication: Product used for unknown indication
     Route: 065

REACTIONS (6)
  - Suicidal ideation [Unknown]
  - Withdrawal syndrome [Unknown]
  - Product dose omission issue [Unknown]
  - Paranoia [Unknown]
  - Anxiety [Unknown]
  - Panic attack [Unknown]
